FAERS Safety Report 10135733 (Version 1)
Quarter: 2014Q2

REPORT INFORMATION
  Report Type: Spontaneous
  Country: US (occurrence: US)
  Receive Date: 20140428
  Receipt Date: 20140428
  Transmission Date: 20141212
  Serious: No
  Sender: FDA-Public Use
  Company Number: US-GILEAD-2014-0100791

PATIENT
  Age: 54 Year
  Sex: Female

DRUGS (18)
  1. LETAIRIS [Suspect]
     Indication: PRODUCT USED FOR UNKNOWN INDICATION
     Dosage: 5 MG, QD
     Route: 065
     Dates: start: 20140416, end: 20140418
  2. CELLCEPT                           /01275102/ [Concomitant]
  3. XANAX [Concomitant]
  4. SPIRONOLACTONE [Concomitant]
  5. ZOFRAN                             /00955302/ [Concomitant]
  6. NITROGLYCERIN [Concomitant]
  7. FUROSEMIDE [Concomitant]
  8. PEPCID                             /00706001/ [Concomitant]
  9. NEXIUM                             /01479302/ [Concomitant]
  10. CYMBALTA [Concomitant]
  11. VITAMIN D NOS [Concomitant]
  12. ZYRTEC [Concomitant]
  13. ASPIRIN [Concomitant]
  14. CELLCEPT                           /01275102/ [Concomitant]
  15. ZOFRAN                             /00955302/ [Concomitant]
  16. PEPCID                             /00706001/ [Concomitant]
  17. NEXIUM                             /01479302/ [Concomitant]
  18. VITAMIN D                          /00107901/ [Concomitant]

REACTIONS (5)
  - Chest pain [Recovered/Resolved]
  - Pruritus [Unknown]
  - Paraesthesia [Unknown]
  - Peripheral swelling [Recovered/Resolved]
  - Dyspnoea [Recovered/Resolved]
